FAERS Safety Report 5278401-1 (Version None)
Quarter: 2007Q1

REPORT INFORMATION
  Report Type: 
  Country: None (occurrence: None)
  Receive Date: 20070322
  Receipt Date: 20070308
  Transmission Date: 20070707
  Serious: Yes (Hospitalization)
  Sender: FDA-Public Use
  Company Number: 8022740

PATIENT
  Age: 74 Year
  Sex: Female
  Weight: 56 kg

DRUGS (8)
  1. KEPPRA [Suspect]
     Indication: EPILEPSY
     Dosage: 500 MG  2/D  PO
     Route: 048
     Dates: start: 20070220
  2. NEURONTIN [Suspect]
     Indication: PAIN
     Dosage: 600 MG 3/D PO
     Route: 048
  3. NEURONTIN [Suspect]
     Indication: PAIN
     Dosage: 1200 MG /D PO
     Route: 048
  4. ARIMIDEX [Concomitant]
  5. EZETROL [Concomitant]
  6. METOPROLOL TARTRATE [Concomitant]
  7. KARDEGIC [Concomitant]
  8. INIPOMP [Concomitant]

REACTIONS (7)
  - ANOREXIA [None]
  - ASTHENIA [None]
  - DELIRIUM [None]
  - HALLUCINATION [None]
  - LOSS OF CONSCIOUSNESS [None]
  - PULMONARY EMBOLISM [None]
  - SOMNOLENCE [None]
